FAERS Safety Report 5050496-X (Version None)
Quarter: 2006Q3

REPORT INFORMATION
  Report Type: 
  Country: None (occurrence: None)
  Receive Date: 20060707
  Receipt Date: 20060621
  Transmission Date: 20061208
  Serious: Yes (Hospitalization)
  Sender: FDA-Public Use
  Company Number: 6023561

PATIENT
  Age: 53 Year
  Sex: Female

DRUGS (1)
  1. METHIMAZOLE [Suspect]

REACTIONS (11)
  - APLASTIC ANAEMIA [None]
  - BLOOD CALCIUM DECREASED [None]
  - BONE MARROW FAILURE [None]
  - BONE MARROW PLASMACYTE COUNT INCREASED [None]
  - GOITRE [None]
  - HYPOKALAEMIA [None]
  - IMMUNODEFICIENCY [None]
  - PALPITATIONS [None]
  - PHARYNGOLARYNGEAL PAIN [None]
  - PNEUMONIA STREPTOCOCCAL [None]
  - PROTHROMBIN TIME PROLONGED [None]
